FAERS Safety Report 6399455-5 (Version None)
Quarter: 2009Q4

REPORT INFORMATION
  Report Type: 
  Country: None (occurrence: None)
  Receive Date: 20091014
  Receipt Date: 20091005
  Transmission Date: 20100525
  Serious: Yes (Other)
  Sender: FDA-Public Use
  Company Number: US-ASTRAZENECA-2007UW12844

PATIENT
  Age: 46 Year
  Sex: Female
  Weight: 44 kg

DRUGS (12)
  1. SEROQUEL [Suspect]
     Indication: SLEEP DISORDER
     Dosage: 100-300MG
     Route: 048
     Dates: start: 20040319
  2. SEROQUEL [Suspect]
     Indication: BIPOLAR DISORDER
     Dosage: 100-300MG
     Route: 048
     Dates: start: 20040319
  3. SEROQUEL [Suspect]
     Indication: DEPRESSION
     Dosage: 100-300MG
     Route: 048
     Dates: start: 20040319
  4. SEROQUEL [Suspect]
     Dosage: 50-500 MG
     Route: 048
     Dates: start: 20050401, end: 20060101
  5. SEROQUEL [Suspect]
     Dosage: 50-500 MG
     Route: 048
     Dates: start: 20050401, end: 20060101
  6. SEROQUEL [Suspect]
     Dosage: 50-500 MG
     Route: 048
     Dates: start: 20050401, end: 20060101
  7. SEROQUEL [Suspect]
     Dosage: 50-500 MG
     Route: 048
     Dates: start: 20060101
  8. SEROQUEL [Suspect]
     Dosage: 50-500 MG
     Route: 048
     Dates: start: 20060101
  9. SEROQUEL [Suspect]
     Dosage: 50-500 MG
     Route: 048
     Dates: start: 20060101
  10. TRAZODONE [Concomitant]
     Route: 048
  11. GEODON [Concomitant]
     Dates: start: 20080101
  12. CELEXA [Concomitant]
     Dates: start: 20090101

REACTIONS (5)
  - BREAST CANCER [None]
  - CARDIAC DISORDER [None]
  - CARDIAC MURMUR [None]
  - NEOPLASM MALIGNANT [None]
  - PANCREATITIS ACUTE [None]
